FAERS Safety Report 6761823-7 (Version None)
Quarter: 2010Q2

REPORT INFORMATION
  Report Type: 
  Country: None (occurrence: None)
  Receive Date: 20100607
  Receipt Date: 20100525
  Transmission Date: 20101027
  Serious: Yes (Hospitalization, Other)
  Sender: FDA-Public Use
  Company Number: 7003065

PATIENT
  Age: 40 Year
  Sex: Male
  Weight: 111 kg

DRUGS (4)
  1. REBIF [Suspect]
     Indication: MULTIPLE SCLEROSIS
     Dosage: 44 MCG, 3 IN 1 WK, SUBCUTANEOUS
     Route: 058
     Dates: start: 20090821
  2. WELLBUTRIN [Concomitant]
  3. UNSPECIFIED BIPOLAR MEDICATION (ALL OTHER THERAPEUTIC [Concomitant]
  4. COREG [Concomitant]

REACTIONS (9)
  - DEPRESSION [None]
  - FEELING ABNORMAL [None]
  - HYPOPHAGIA [None]
  - INJECTION SITE DISCOLOURATION [None]
  - INJECTION SITE ERYTHEMA [None]
  - INJECTION SITE INFECTION [None]
  - INJECTION SITE PAIN [None]
  - INJECTION SITE SCAB [None]
  - SUICIDE ATTEMPT [None]
